FAERS Safety Report 25136214 (Version 2)
Quarter: 2025Q2

REPORT INFORMATION
  Report Type: Spontaneous
  Country: US (occurrence: US)
  Receive Date: 20250328
  Receipt Date: 20250410
  Transmission Date: 20250717
  Serious: No
  Sender: CALLIDITAS THERAPEUTICS
  Company Number: US-Calliditas-2025CAL00775

PATIENT
  Age: 55 Year
  Sex: Male

DRUGS (8)
  1. TARPEYO [Suspect]
     Active Substance: BUDESONIDE
     Indication: Nephritic syndrome
     Dosage: TAKE 4 CAPSULES (16 MG) BY MOUTH ONCE DAILY.
     Route: 048
     Dates: start: 202503
  2. ALLOPURINOL [Concomitant]
     Active Substance: ALLOPURINOL
  3. COQ10 [ASCORBIC ACID;BETACAROTENE;CUPRIC OXIDE;MANGANESE SULFATE;SE... [Concomitant]
  4. FARXIGA [Concomitant]
     Active Substance: DAPAGLIFLOZIN PROPANEDIOL
  5. EPLERENONE [Concomitant]
     Active Substance: EPLERENONE
  6. OLMESARTAN [Concomitant]
     Active Substance: OLMESARTAN
  7. FISH OIL [Concomitant]
     Active Substance: FISH OIL
  8. PRAVASTATIN [Concomitant]
     Active Substance: PRAVASTATIN

REACTIONS (1)
  - Dyspnoea [Not Recovered/Not Resolved]

NARRATIVE: CASE EVENT DATE: 20250301
